FAERS Safety Report 13349850 (Version 1)
Quarter: 2017Q1

REPORT INFORMATION
  Report Type: Spontaneous
  Country: US (occurrence: US)
  Receive Date: 20170318
  Receipt Date: 20170318
  Transmission Date: 20170429
  Serious: Yes (Other)
  Sender: FDA-Public Use
  Company Number: None

PATIENT
  Age: 50 Year
  Sex: Female
  Weight: 90 kg

DRUGS (9)
  1. MORPHINE ER [Concomitant]
     Active Substance: MORPHINE
  2. BACLOFEN. [Concomitant]
     Active Substance: BACLOFEN
  3. ATENOLOL. [Concomitant]
     Active Substance: ATENOLOL
  4. LASIX [Concomitant]
     Active Substance: FUROSEMIDE
  5. MOVANTIK [Suspect]
     Active Substance: NALOXEGOL OXALATE
     Indication: CONSTIPATION
     Dosage: ?          QUANTITY:30 TABLET(S);?
     Route: 048
     Dates: start: 20170315, end: 20170315
  6. FLEXERIL [Concomitant]
     Active Substance: CYCLOBENZAPRINE HYDROCHLORIDE
  7. MORPHINE IR [Concomitant]
     Active Substance: MORPHINE
  8. PRILOSEC [Concomitant]
     Active Substance: OMEPRAZOLE MAGNESIUM
  9. TOPAMAX [Concomitant]
     Active Substance: TOPIRAMATE

REACTIONS (12)
  - Tremor [None]
  - Insomnia [None]
  - Musculoskeletal stiffness [None]
  - Diarrhoea [None]
  - Abdominal pain upper [None]
  - Erythema [None]
  - Oropharyngeal pain [None]
  - Chills [None]
  - Pruritus [None]
  - Retching [None]
  - Movement disorder [None]
  - Arthralgia [None]

NARRATIVE: CASE EVENT DATE: 20170315
